FAERS Safety Report 9214138 (Version 1)
Quarter: 2013Q2

REPORT INFORMATION
  Report Type: Spontaneous
  Country: US (occurrence: US)
  Receive Date: 20130405
  Receipt Date: 20130405
  Transmission Date: 20140414
  Serious: No
  Sender: FDA-Public Use
  Company Number: US-009507513-1304USA002346

PATIENT
  Age: 59 Year
  Sex: Female

DRUGS (4)
  1. VYTORIN [Suspect]
     Dosage: 10/10 MG, HS
     Route: 048
  2. PHENERGAN (PROMETHAZINE HYDROCHLORIDE) [Concomitant]
  3. PROTONIX [Concomitant]
  4. ENDOCET [Concomitant]

REACTIONS (1)
  - Hypersensitivity [Not Recovered/Not Resolved]
